FAERS Safety Report 19042361 (Version 1)
Quarter: 2021Q1

REPORT INFORMATION
  Report Type: Report from Study
  Country: BE (occurrence: BE)
  Receive Date: 20210323
  Receipt Date: 20210323
  Transmission Date: 20210420
  Serious: Yes (Death, Other)
  Sender: FDA-Public Use
  Company Number: BE-SUN PHARMACEUTICAL INDUSTRIES LTD-2021R1-287050

PATIENT
  Age: 54 Year
  Sex: Male

DRUGS (2)
  1. HYDROXYCHLOROQUINE [Suspect]
     Active Substance: HYDROXYCHLOROQUINE
     Indication: COVID-19
     Dosage: UNK
     Route: 065
  2. CEFUROXIM [Suspect]
     Active Substance: CEFUROXIME
     Indication: COVID-19
     Dosage: UNK
     Route: 065

REACTIONS (2)
  - Infection [Fatal]
  - Haemophilus infection [Fatal]
